FAERS Safety Report 26093641 (Version 1)
Quarter: 2025Q4

REPORT INFORMATION
  Report Type: Spontaneous
  Country: GB (occurrence: GB)
  Receive Date: 20251126
  Receipt Date: 20251126
  Transmission Date: 20260117
  Serious: Yes (Other)
  Sender: SAMSUNG BIOEPIS
  Company Number: GB-MHRA-DEFECT-202511052129064140-DGPZC

PATIENT
  Sex: Male

DRUGS (2)
  1. PYZCHIVA [Suspect]
     Active Substance: USTEKINUMAB-TTWE
     Indication: Psoriatic arthropathy
     Dates: start: 20250708
  2. PYZCHIVA [Suspect]
     Active Substance: USTEKINUMAB-TTWE
     Dates: start: 20251010

REACTIONS (3)
  - Psoriatic arthropathy [Unknown]
  - Drug ineffective [Unknown]
  - Product substitution issue [Unknown]
